FAERS Safety Report 8432138-6 (Version None)
Quarter: 2012Q2

REPORT INFORMATION
  Report Type: 
  Country: None (occurrence: None)
  Receive Date: 20120607
  Receipt Date: 20120530
  Transmission Date: 20120825
  Serious: Yes (Other)
  Sender: FDA-Public Use
  Company Number: 2012MA006763

PATIENT
  Age: 87 Year
  Sex: Female

DRUGS (4)
  1. INDAPAMIDE [Suspect]
     Dosage: 1.5 MG;QD;PO
     Route: 048
     Dates: start: 20120428, end: 20120505
  2. SIMVASTATIN [Concomitant]
  3. ACETYLSALICYLIC ACID SRT [Concomitant]
  4. BENDROFLUMETHIAZIDE [Concomitant]

REACTIONS (2)
  - PAIN IN EXTREMITY [None]
  - URINARY RETENTION [None]
